FAERS Safety Report 10470619 (Version 4)
Quarter: 2015Q1

REPORT INFORMATION
  Report Type: Spontaneous
  Country: US (occurrence: US)
  Receive Date: 20140923
  Receipt Date: 20150204
  Transmission Date: 20150720
  Serious: Yes (Life-Threatening, Hospitalization, Other)
  Sender: FDA-Public Use
  Company Number: US-MERCK-1409USA011181

PATIENT
  Sex: Male
  Weight: 111.11 kg

DRUGS (1)
  1. JANUVIA [Suspect]
     Active Substance: SITAGLIPTIN PHOSPHATE
     Indication: TYPE 2 DIABETES MELLITUS
     Dosage: 100 MG, QD
     Route: 048
     Dates: start: 20120509

REACTIONS (27)
  - Renal stone removal [Unknown]
  - Pancreatitis [Unknown]
  - Hepatic cyst [Unknown]
  - Peptic ulcer [Unknown]
  - Bacteraemia [Unknown]
  - Blood cholesterol increased [Unknown]
  - Intervertebral disc degeneration [Unknown]
  - Adenocarcinoma pancreas [Unknown]
  - Hip arthroplasty [Unknown]
  - Oedema peripheral [Not Recovered/Not Resolved]
  - Pulmonary mass [Unknown]
  - Anaemia [Unknown]
  - Hypertension [Unknown]
  - Sleep apnoea syndrome [Unknown]
  - Hiatus hernia [Unknown]
  - Microalbuminuria [Unknown]
  - Haematuria [Unknown]
  - Nephrolithiasis [Unknown]
  - Hydrocele operation [Unknown]
  - Inguinal hernia repair [Unknown]
  - Urinary tract infection [Unknown]
  - Hernia [Unknown]
  - Pancreatic cyst [Unknown]
  - Pancreaticoduodenectomy [Unknown]
  - Emphysema [Unknown]
  - Prostatic calcification [Unknown]
  - Lung infection [Unknown]

NARRATIVE: CASE EVENT DATE: 2013
